FAERS Safety Report 9224707 (Version 1)
Quarter: 2013Q2

REPORT INFORMATION
  Report Type: Spontaneous
  Country: US (occurrence: None)
  Receive Date: 20130409
  Receipt Date: 20130409
  Transmission Date: 20140414
  Serious: Yes (Other)
  Sender: FDA-Public Use
  Company Number: None

PATIENT
  Age: 19 Year
  Sex: Male
  Weight: 72.12 kg

DRUGS (2)
  1. DILANTIN [Suspect]
     Dates: start: 200810, end: 200906
  2. LEVETIRACETAM [Suspect]
     Dates: start: 200906, end: 200907

REACTIONS (1)
  - Convulsion [None]
